FAERS Safety Report 19134165 (Version 2)
Quarter: 2021Q2

REPORT INFORMATION
  Report Type: Spontaneous
  Country: RU (occurrence: RU)
  Receive Date: 20210414
  Receipt Date: 20210427
  Transmission Date: 20210717
  Serious: Yes (Life-Threatening, Hospitalization, Other)
  Sender: FDA-Public Use
  Company Number: RU-HIKMA PHARMACEUTICALS USA INC.-RU-H14001-21-01795

PATIENT
  Age: 45 Year
  Sex: Female

DRUGS (1)
  1. RIBOCARBO?L [Suspect]
     Active Substance: CARBOPLATIN
     Indication: CERVIX CARCINOMA
     Route: 042

REACTIONS (2)
  - Tumour necrosis [Recovered/Resolved]
  - Peritonitis [Recovered/Resolved]

NARRATIVE: CASE EVENT DATE: 20210304
